FAERS Safety Report 6720407-7 (Version None)
Quarter: 2010Q2

REPORT INFORMATION
  Report Type: 
  Country: None (occurrence: None)
  Receive Date: 20100511
  Receipt Date: 20100507
  Transmission Date: 20101027
  Serious: Yes (Death, Hospitalization)
  Sender: FDA-Public Use
  Company Number: FR-ABBOTT-10P-056-0642871-02

PATIENT
  Sex: Female
  Weight: 44 kg

DRUGS (3)
  1. HUMIRA [Suspect]
     Indication: RHEUMATOID ARTHRITIS
     Route: 058
     Dates: start: 20040430, end: 20081101
  2. CORTANCYL [Concomitant]
     Indication: RHEUMATOID ARTHRITIS
     Dates: start: 20080221, end: 20081111
  3. TOPALGIC [Concomitant]
     Indication: RHEUMATOID ARTHRITIS
     Dates: start: 20071101, end: 20081111

REACTIONS (1)
  - INTESTINAL INFARCTION [None]
